FAERS Safety Report 10076927 (Version 2)
Quarter: 2014Q2

REPORT INFORMATION
  Report Type: Spontaneous
  Country: JP (occurrence: None)
  Receive Date: 20140410
  Receipt Date: 20140422
  Transmission Date: 20141212
  Serious: No
  Sender: FDA-Public Use
  Company Number: B0982557A

PATIENT
  Age: 73 Year
  Sex: Male

DRUGS (3)
  1. PAROXETINE HYDROCHLORIDE [Suspect]
     Indication: MAJOR DEPRESSION
     Dosage: 13-MAY-2013-------UNKNOWN.
     Route: 048
     Dates: start: 201101, end: 20130512
  2. OLANZAPINE [Concomitant]
  3. PAROXETINE ARROW [Suspect]
     Indication: MAJOR DEPRESSION
     Route: 048
     Dates: start: 20130513

REACTIONS (1)
  - Angle closure glaucoma [None]
